APPROVED DRUG PRODUCT: PATADAY TWICE DAILY RELIEF
Active Ingredient: OLOPATADINE HYDROCHLORIDE
Strength: EQ 0.1% BASE
Dosage Form/Route: SOLUTION/DROPS;OPHTHALMIC
Application: N020688 | Product #001
Applicant: ALCON LABORATORIES INC
Approved: Dec 18, 1996 | RLD: Yes | RS: Yes | Type: OTC